FAERS Safety Report 7326987-5 (Version None)
Quarter: 2011Q1

REPORT INFORMATION
  Report Type: 
  Country: None (occurrence: None)
  Receive Date: 20110302
  Receipt Date: 20110222
  Transmission Date: 20110831
  Serious: Yes (Death, Life-Threatening, Other)
  Sender: FDA-Public Use
  Company Number: JP-MPIJNJ-2007_00478

PATIENT

DRUGS (6)
  1. TAZOCIN [Concomitant]
     Indication: PNEUMONIA
     Dosage: 5 G, UNK
     Route: 042
     Dates: start: 20070120, end: 20070203
  2. VELCADE [Suspect]
     Dosage: 1.30 MG, UNK
     Route: 042
     Dates: start: 20070216, end: 20070226
  3. DEXAMETHASONE [Concomitant]
     Indication: MULTIPLE MYELOMA
     Dosage: 20.00 MG, UNK
     Route: 042
     Dates: start: 20061227, end: 20070227
  4. VELCADE [Suspect]
     Indication: MULTIPLE MYELOMA
     Dosage: 1.80 MG, UNK
     Route: 042
     Dates: start: 20061227, end: 20070103
  5. VELCADE [Suspect]
     Dosage: 0.9 UNK, UNK
     Route: 042
     Dates: start: 20070609, end: 20070612
  6. NEUTROGIN [Concomitant]
     Indication: WHITE BLOOD CELL COUNT DECREASED
     Dosage: 250 UG, UNK
     Route: 042
     Dates: start: 20070106, end: 20070126

REACTIONS (5)
  - PLATELET COUNT DECREASED [None]
  - NEUTROPHIL COUNT DECREASED [None]
  - DISEASE PROGRESSION [None]
  - PNEUMONIA [None]
  - INFLUENZA [None]
